FAERS Safety Report 7094297-X (Version None)
Quarter: 2010Q4

REPORT INFORMATION
  Report Type: 
  Country: None (occurrence: None)
  Receive Date: 20101102
  Receipt Date: 20101026
  Transmission Date: 20110411
  Serious: Yes (Hospitalization)
  Sender: FDA-Public Use
  Company Number: 2010MA004004

PATIENT
  Age: 80 Year
  Sex: Female

DRUGS (4)
  1. CITALOPRAM HYDROBROMIDE [Suspect]
     Indication: DEPRESSION
     Dosage: 20 MG;PO
     Route: 048
     Dates: start: 20100925, end: 20101011
  2. AMISULPRIDE (AMISULPRIDE) [Suspect]
     Indication: DEPRESSION
     Dosage: 50 MG;PO
     Route: 048
     Dates: start: 20100929, end: 20101011
  3. METHOTREXATE [Concomitant]
  4. PREV MEDS [Concomitant]

REACTIONS (1)
  - NEUTROPENIA [None]
